FAERS Safety Report 8308865-8 (Version None)
Quarter: 2012Q2

REPORT INFORMATION
  Report Type: 
  Country: None (occurrence: None)
  Receive Date: 20120424
  Receipt Date: 20120419
  Transmission Date: 20120825
  Serious: Yes (Hospitalization, Other)
  Sender: FDA-Public Use
  Company Number: DK-PFIZER INC-2012036486

PATIENT
  Age: 45 Year
  Sex: Male

DRUGS (1)
  1. VARENICLINE TARTRATE [Suspect]
     Indication: SMOKING CESSATION THERAPY
     Dosage: UNK
     Route: 048
     Dates: start: 20110513, end: 20110523

REACTIONS (4)
  - CHEST PAIN [None]
  - MYOCARDITIS [None]
  - DRUG INEFFECTIVE [None]
  - DIABETES MELLITUS [None]
